FAERS Safety Report 16025599 (Version 1)
Quarter: 2019Q1

REPORT INFORMATION
  Report Type: Spontaneous
  Country: CA (occurrence: CA)
  Receive Date: 20190302
  Receipt Date: 20190302
  Transmission Date: 20190418
  Serious: Yes (Life-Threatening)
  Sender: FDA-Public Use
  Company Number: CA-HLSUS-2019-CA-000221

PATIENT
  Age: 82 Year
  Sex: Male
  Weight: 71 kg

DRUGS (10)
  1. HYDROCHLOROQUINE [Concomitant]
     Active Substance: HYDROXYCHLOROQUINE SULFATE
  2. VITAMIN D [Concomitant]
     Active Substance: CHOLECALCIFEROL
  3. DILTIAZEM. [Concomitant]
     Active Substance: DILTIAZEM
  4. INSULIN GLARGINE [Concomitant]
     Active Substance: INSULIN GLARGINE
     Route: 058
  5. LORAZEPAM. [Concomitant]
     Active Substance: LORAZEPAM
  6. BUPROPION HYDROCHLORIDE XL [Concomitant]
     Active Substance: BUPROPION HYDROCHLORIDE
  7. CLOZAPINE. [Suspect]
     Active Substance: CLOZAPINE
     Indication: MAJOR DEPRESSION
     Dosage: 175.0 MG
     Route: 048
  8. ACETYLSTALICYLIC ACID [Concomitant]
  9. ATORVASTATIN [Concomitant]
     Active Substance: ATORVASTATIN
  10. LEVOTHYROXINE. [Concomitant]
     Active Substance: LEVOTHYROXINE

REACTIONS (11)
  - Product use in unapproved indication [Unknown]
  - Somnolence [Unknown]
  - Wrong dose [Unknown]
  - Muscular weakness [Unknown]
  - Drug titration error [Unknown]
  - Hyporeflexia [Unknown]
  - Loss of consciousness [Unknown]
  - Muscle contractions involuntary [Unknown]
  - Myoclonus [Unknown]
  - Salivary hypersecretion [Unknown]
  - Hypotonia [Unknown]
